FAERS Safety Report 16771558 (Version 4)
Quarter: 2019Q4

REPORT INFORMATION
  Report Type: Spontaneous
  Country: US (occurrence: US)
  Receive Date: 20190904
  Receipt Date: 20191007
  Transmission Date: 20200122
  Serious: No
  Sender: FDA-Public Use
  Company Number: US-PFIZER INC-2019379216

PATIENT
  Age: 66 Year
  Sex: Male
  Weight: 99.77 kg

DRUGS (1)
  1. CELECOXIB. [Suspect]
     Active Substance: CELECOXIB
     Indication: BACK DISORDER
     Dosage: UNK

REACTIONS (1)
  - Drug ineffective [Unknown]
